FAERS Safety Report 5171061-X (Version None)
Quarter: 2006Q4

REPORT INFORMATION
  Report Type: 
  Country: None (occurrence: None)
  Receive Date: 20061213
  Receipt Date: 20061208
  Transmission Date: 20070319
  Serious: Yes (Disabling)
  Sender: FDA-Public Use
  Company Number: US-GLAXOSMITHKLINE-A0630934A

PATIENT
  Age: 90 Year
  Sex: Female

DRUGS (12)
  1. AVANDIA [Suspect]
     Dosage: 4MG PER DAY
     Route: 048
     Dates: start: 20060601, end: 20061001
  2. GLUCOTROL [Concomitant]
  3. GLUCOPHAGE [Concomitant]
  4. COUMADIN [Concomitant]
  5. ZOCOR [Concomitant]
  6. DIGOXIN [Concomitant]
  7. LASIX [Concomitant]
  8. ASPIRIN [Concomitant]
  9. DARVOCET-N 100 [Concomitant]
  10. LEXAPRO [Concomitant]
  11. ZAROXOLYN [Concomitant]
  12. UNKNOWN MEDICATION [Concomitant]

REACTIONS (16)
  - ABASIA [None]
  - ANAEMIA [None]
  - ASTHENIA [None]
  - BLOOD PRESSURE DECREASED [None]
  - DIPLOPIA [None]
  - DIZZINESS [None]
  - DYSPNOEA [None]
  - DYSPNOEA AT REST [None]
  - EYE DISCHARGE [None]
  - FLUID RETENTION [None]
  - INSOMNIA [None]
  - OEDEMA [None]
  - SECRETION DISCHARGE [None]
  - SENSATION OF HEAVINESS [None]
  - TREMOR [None]
  - WEIGHT INCREASED [None]
